FAERS Safety Report 9013384 (Version 1)
Quarter: 2013Q1

REPORT INFORMATION
  Report Type: Spontaneous
  Country: US (occurrence: US)
  Receive Date: 20130114
  Receipt Date: 20130114
  Transmission Date: 20140127
  Serious: No
  Sender: FDA-Public Use
  Company Number: US-ASTRAZENECA-2013SE01092

PATIENT
  Age: 81 Year
  Sex: Female
  Weight: 65.8 kg

DRUGS (4)
  1. PULMICORT FLEXHALER [Suspect]
     Indication: ASTHMA
     Route: 055
     Dates: start: 20130102
  2. PULMICORT FLEXHALER [Suspect]
     Indication: POLYP
     Route: 055
     Dates: start: 20130102
  3. SYNTHYROID [Concomitant]
     Indication: THYROID DISORDER
  4. LIPITOR [Concomitant]

REACTIONS (1)
  - Dyspnoea [Unknown]
